FAERS Safety Report 6804559-6 (Version None)
Quarter: 2010Q2

REPORT INFORMATION
  Report Type: 
  Country: None (occurrence: None)
  Receive Date: 20100628
  Receipt Date: 20070423
  Transmission Date: 20101027
  Serious: Yes (Other)
  Sender: FDA-Public Use
  Company Number: US-PFIZER INC-2007032591

PATIENT
  Age: 19 Year
  Sex: Female

DRUGS (4)
  1. GEODON [Suspect]
     Dosage: WITH FOOD
  2. ALL OTHER THERAPEUTIC PRODUCTS [Concomitant]
  3. LAMICTAL [Concomitant]
  4. SSRI [Concomitant]

REACTIONS (1)
  - NEUROLEPTIC MALIGNANT SYNDROME [None]
